FAERS Safety Report 8425391-6 (Version None)
Quarter: 2012Q2

REPORT INFORMATION
  Report Type: 
  Country: None (occurrence: None)
  Receive Date: 20120604
  Receipt Date: 20120525
  Transmission Date: 20120825
  Serious: Yes (Hospitalization)
  Sender: FDA-Public Use
  Company Number: AUR-APL-2009-00812

PATIENT
  Age: 52 Year
  Sex: Male

DRUGS (16)
  1. CITALOPRAM  CIPRAMIL (CITALOPRAM) [Suspect]
     Indication: DEPRESSION
     Dosage: 40 MG, ORAL
     Route: 048
     Dates: start: 20011207, end: 20090803
  2. DIAZEPAM [Concomitant]
  3. DOXAZOSIN MESYLATE [Concomitant]
  4. VALPROATE SODIUM [Suspect]
     Indication: MOOD SWINGS
     Dosage: 2200 MG, ORAL
     Route: 048
     Dates: start: 20060914
  5. CLOZAPINE [Concomitant]
  6. ASPIRIN [Concomitant]
  7. ATENOLOL [Concomitant]
  8. LACTULOSE [Concomitant]
  9. PIRENZEPINE (PIRENZEPINE) [Concomitant]
  10. SIMVASTATIN [Concomitant]
  11. BISOPROLOL FUMARATE [Concomitant]
  12. IBUPROFEN [Concomitant]
  13. RAMIPRIL [Concomitant]
  14. RISPERIDONE [Suspect]
     Indication: PSYCHOTIC DISORDER
     Dosage: 4 MG (2 MG, 2 IN 1 D), ORAL
     Route: 048
     Dates: start: 20060914
  15. OMEPRAZOLE [Concomitant]
  16. SENNA-MINT WAF [Concomitant]

REACTIONS (2)
  - SYNCOPE [None]
  - HYPONATRAEMIA [None]
